FAERS Safety Report 12709444 (Version 1)
Quarter: 2016Q3

REPORT INFORMATION
  Report Type: Spontaneous
  Country: IL (occurrence: IL)
  Receive Date: 20160902
  Receipt Date: 20160902
  Transmission Date: 20161109
  Serious: Yes (Hospitalization, Other)
  Sender: FDA-Public Use
  Company Number: IL-JNJFOC-20160819451

PATIENT
  Age: 65 Year
  Sex: Male

DRUGS (6)
  1. METHYLPREDNISOLONE. [Concomitant]
     Active Substance: METHYLPREDNISOLONE
  2. IBRUTINIB [Suspect]
     Active Substance: IBRUTINIB
     Indication: CHRONIC LYMPHOCYTIC LEUKAEMIA
     Route: 048
  3. AMIODARONE [Interacting]
     Active Substance: AMIODARONE
     Indication: ATRIAL FIBRILLATION
     Route: 042
  4. APIXABAN [Concomitant]
     Active Substance: APIXABAN
     Indication: ATRIAL FIBRILLATION
     Dates: start: 201401
  5. AMIODARONE [Interacting]
     Active Substance: AMIODARONE
     Indication: ATRIAL FIBRILLATION
     Route: 042
  6. AMIODARONE [Interacting]
     Active Substance: AMIODARONE
     Indication: ATRIAL FIBRILLATION
     Route: 042

REACTIONS (2)
  - Cardiac failure [Recovered/Resolved]
  - Drug interaction [Recovered/Resolved]
